FAERS Safety Report 14517886 (Version 1)
Quarter: 2018Q1

REPORT INFORMATION
  Report Type: Spontaneous
  Country: US (occurrence: US)
  Receive Date: 20180212
  Receipt Date: 20180212
  Transmission Date: 20180509
  Serious: No
  Sender: FDA-Public Use
  Company Number: US-B.I. PHARMACEUTICALS,INC./RIDGEFIELD-2018-BI-007102

PATIENT
  Sex: Male

DRUGS (1)
  1. OFEV [Suspect]
     Active Substance: NINTEDANIB
     Indication: IDIOPATHIC PULMONARY FIBROSIS
     Dosage: 1CAPBID;FRMSTRNGTH:150MG;FRMLATION:CPSLEADMNSTRATIONCORRECT?NRACTIONTAKEN WITH PRODUCT: NOT REPORTED
     Route: 065

REACTIONS (2)
  - Blood glucose abnormal [Unknown]
  - Diarrhoea [Unknown]
